FAERS Safety Report 5664717-3 (Version None)
Quarter: 2008Q1

REPORT INFORMATION
  Report Type: 
  Country: None (occurrence: None)
  Receive Date: 20080314
  Receipt Date: 20080303
  Transmission Date: 20080703
  Serious: Yes (Other)
  Sender: FDA-Public Use
  Company Number: US-ELI_LILLY_AND_COMPANY-US200802002223

PATIENT
  Sex: Male

DRUGS (17)
  1. CIALIS [Suspect]
     Indication: PROSTATECTOMY
     Dosage: 10 MG, DAILY (1/D)
     Route: 048
     Dates: start: 20070913, end: 20070922
  2. CIALIS [Suspect]
     Dosage: 10 MG, DAILY (1/D)
     Route: 048
     Dates: start: 20080206, end: 20080207
  3. FOSAMAX [Concomitant]
     Dosage: 70 MG, WEEKLY (1/W)
     Dates: end: 20080101
  4. COLECALCIFEROL [Concomitant]
     Dosage: 400 UNK, 2/D
  5. CALCIUM [Concomitant]
     Dosage: 600 MG, 2/D
  6. METAMUCIL [Concomitant]
     Dosage: 1 UNK, EACH MORNING
  7. MULTI-VITAMIN [Concomitant]
     Dosage: 1 D/F, EACH MORNING
  8. ZYRTEC [Concomitant]
     Indication: URTICARIA
     Dosage: 10 MG, DAILY (1/D)
  9. ZYRTEC [Concomitant]
     Dosage: 3 MG, DAILY (1/D)
  10. ALLEGRA [Concomitant]
     Indication: URTICARIA
     Dosage: 180 MG, EACH MORNING
  11. RANITIDINE [Concomitant]
     Indication: URTICARIA
     Dosage: 150 MG, 2/D
  12. VIAGRA [Concomitant]
     Dosage: 25 MG, UNK
     Dates: start: 20070912
  13. CIPROFLOXACIN [Concomitant]
     Dosage: 250 MG, 2/D
     Dates: start: 20070101
  14. FERROUS SULFATE TAB [Concomitant]
     Dosage: 1 D/F, 2/D
     Dates: start: 20070101
  15. NASONEX [Concomitant]
     Dosage: 2 UNK, EACH MORNING
     Route: 045
  16. ENOXAPARIN SODIUM [Concomitant]
     Dosage: 100 MG, DAILY (1/D)
  17. FRAGMIN [Concomitant]
     Dosage: 5000 U, DAILY (1/D)
     Route: 051

REACTIONS (5)
  - DEEP VEIN THROMBOSIS POSTOPERATIVE [None]
  - INSOMNIA [None]
  - LYMPHOCELE [None]
  - OEDEMA PERIPHERAL [None]
  - PAIN IN EXTREMITY [None]
